FAERS Safety Report 5386695-7 (Version None)
Quarter: 2007Q3

REPORT INFORMATION
  Report Type: 
  Country: None (occurrence: None)
  Receive Date: 20070713
  Receipt Date: 20070219
  Transmission Date: 20080115
  Serious: Yes (Death, Hospitalization)
  Sender: FDA-Public Use
  Company Number: ZA-ROCHE-482084

PATIENT
  Age: 58 Year
  Sex: Female
  Weight: 78 kg

DRUGS (8)
  1. CAPECITABINE [Suspect]
     Route: 048
     Dates: start: 20070118
  2. DOCETAXEL [Suspect]
     Dosage: FORM REPORTED AS ^FLUID^. BOTH 80 MG + 20 MG STRENGTH TAXOTERE ADMINISTERED.
     Route: 042
     Dates: start: 20070118
  3. ENALAPRIL MALEATE [Concomitant]
     Dates: start: 19960101
  4. HYDROCHLOROTHIAZIDE [Concomitant]
     Dates: start: 19960101
  5. NORVASC [Concomitant]
     Dates: start: 19960101
  6. GLUCOPHAGE [Concomitant]
     Dates: start: 19960101
  7. GLIBENCLAMIDE [Concomitant]
     Dates: start: 19960101
  8. DEXAMETHASONE 0.5MG TAB [Concomitant]
     Indication: PREMEDICATION

REACTIONS (2)
  - DIABETIC KETOACIDOSIS [None]
  - SEPSIS [None]
